FAERS Safety Report 17478443 (Version 1)
Quarter: 2020Q1

REPORT INFORMATION
  Report Type: Spontaneous
  Country: US (occurrence: US)
  Receive Date: 20200229
  Receipt Date: 20200229
  Transmission Date: 20200409
  Serious: Yes (Hospitalization, Other)
  Sender: FDA-Public Use
  Company Number: US-ALEMBIC PHARMACUETICALS LIMITED-2020SCAL000088

PATIENT

DRUGS (2)
  1. COCAINE [Suspect]
     Active Substance: COCAINE
     Indication: DRUG ABUSE
     Dosage: UNK
     Route: 045
  2. METOPROLOL TARTRATE. [Suspect]
     Active Substance: METOPROLOL TARTRATE
     Indication: CARDIAC FAILURE
     Dosage: UNK

REACTIONS (4)
  - Vomiting [Unknown]
  - Pancreatitis [Unknown]
  - Abdominal pain upper [Unknown]
  - Nausea [Unknown]
